FAERS Safety Report 8077049-3 (Version None)
Quarter: 2012Q1

REPORT INFORMATION
  Report Type: 
  Country: None (occurrence: None)
  Receive Date: 20120127
  Receipt Date: 20111114
  Transmission Date: 20120608
  Serious: Yes (Hospitalization)
  Sender: FDA-Public Use
  Company Number: US-PERRIGO-11US010353

PATIENT
  Sex: Male
  Weight: 69.388 kg

DRUGS (2)
  1. ATACAND [Suspect]
     Indication: DYSPEPSIA
     Dosage: 30 ML, EVERY 5 HOURS X2 DOSES
     Route: 048
     Dates: start: 20111107, end: 20111107
  2. NAPROXEN (ALEVE) [Concomitant]
     Indication: PAIN
     Dosage: UNKNOWN MG, PRN
     Route: 048

REACTIONS (5)
  - DRUG INEFFECTIVE [None]
  - INCORRECT DOSE ADMINISTERED [None]
  - HYPOAESTHESIA [None]
  - MYOCARDIAL INFARCTION [None]
  - CHEST PAIN [None]
